FAERS Safety Report 9682701 (Version 2)
Quarter: 2014Q2

REPORT INFORMATION
  Report Type: Report from Study
  Country: GB (occurrence: GB)
  Receive Date: 20131112
  Receipt Date: 20140422
  Transmission Date: 20141212
  Serious: Yes (Other)
  Sender: FDA-Public Use
  Company Number: GB-ROCHE-1302083

PATIENT
  Sex: Female
  Weight: 76.27 kg

DRUGS (4)
  1. RANIBIZUMAB [Suspect]
     Indication: AGE-RELATED MACULAR DEGENERATION
     Route: 050
     Dates: start: 20130605
  2. RANIBIZUMAB [Suspect]
     Route: 050
     Dates: start: 20130730
  3. CLOPIDOGREL [Suspect]
     Indication: MYOCARDIAL ISCHAEMIA
     Route: 065
  4. DOMPERIDONE [Concomitant]

REACTIONS (1)
  - Haematemesis [Recovered/Resolved]
